FAERS Safety Report 4766114-1 (Version None)
Quarter: 2005Q3

REPORT INFORMATION
  Report Type: 
  Country: None (occurrence: None)
  Receive Date: 20050912
  Receipt Date: 20050830
  Transmission Date: 20060218
  Serious: Yes (Other)
  Sender: FDA-Public Use
  Company Number: GB-MERCK-0508GBR00169

PATIENT
  Age: 56 Year
  Sex: Female

DRUGS (7)
  1. ZOCOR [Suspect]
     Indication: BLOOD CHOLESTEROL INCREASED
     Route: 048
     Dates: start: 20000601, end: 20050501
  2. METFORMIN [Concomitant]
     Indication: DIABETES MELLITUS
     Route: 065
  3. SALMETEROL XINAFOATE [Concomitant]
     Indication: ASTHMA
     Route: 065
  4. TERBUTALINE SULFATE [Concomitant]
     Indication: ASTHMA
     Route: 065
  5. BUDESONIDE [Concomitant]
     Indication: ASTHMA
     Route: 065
  6. FUROSEMIDE [Concomitant]
     Indication: HYPERTENSION
     Route: 065
  7. TRANDOLAPRIL [Concomitant]
     Indication: HYPERTENSION
     Route: 065

REACTIONS (2)
  - AMNESIA [None]
  - DISORIENTATION [None]
